FAERS Safety Report 5146656-X (Version None)
Quarter: 2006Q4

REPORT INFORMATION
  Report Type: 
  Country: None (occurrence: None)
  Receive Date: 20061107
  Receipt Date: 20061107
  Transmission Date: 20070319
  Serious: Yes (Other)
  Sender: FDA-Public Use
  Company Number: None

PATIENT
  Age: 15 Year
  Sex: Male

DRUGS (1)
  1. BENADRYL [Suspect]
     Dosage: 4-6 HRS PRN
     Dates: start: 20001102

REACTIONS (3)
  - DRUG HYPERSENSITIVITY [None]
  - RASH [None]
  - SWELLING [None]
